FAERS Safety Report 4814955-4 (Version None)
Quarter: 2005Q4

REPORT INFORMATION
  Report Type: 
  Country: None (occurrence: None)
  Receive Date: 20051028
  Receipt Date: 20051014
  Transmission Date: 20060501
  Serious: Yes (Hospitalization)
  Sender: FDA-Public Use
  Company Number: NLWYE055914OCT05

PATIENT
  Sex: Female
  Weight: 73 kg

DRUGS (5)
  1. ENBREL [Suspect]
     Indication: RHEUMATOID ARTHRITIS
     Route: 058
     Dates: start: 20040119, end: 20050208
  2. CHLORTHALIDONE [Concomitant]
     Indication: FLUID RETENTION
     Dates: start: 20041101
  3. THYRAX [Concomitant]
     Indication: HYPOTHYROIDISM
     Dosage: UNKNOWN
     Dates: start: 20041101
  4. DICLOFENAC [Concomitant]
     Indication: RHEUMATOID ARTHRITIS
  5. PANTOZOL [Concomitant]
     Indication: PROPHYLAXIS

REACTIONS (2)
  - NEPHROTIC SYNDROME [None]
  - RENAL IMPAIRMENT [None]
